FAERS Safety Report 25655994 (Version 1)
Quarter: 2025Q3

REPORT INFORMATION
  Report Type: Spontaneous
  Country: US (occurrence: US)
  Receive Date: 20250807
  Receipt Date: 20250807
  Transmission Date: 20251020
  Serious: No
  Sender: ABBVIE
  Company Number: US-ABBVIE-6397633

PATIENT

DRUGS (1)
  1. CYCLOSPORINE [Suspect]
     Active Substance: CYCLOSPORINE
     Indication: Dry eye
     Route: 047

REACTIONS (4)
  - Influenza like illness [Unknown]
  - Lacrimation increased [Unknown]
  - Rhinorrhoea [Unknown]
  - Oropharyngeal pain [Unknown]
